FAERS Safety Report 19704307 (Version 10)
Quarter: 2022Q3

REPORT INFORMATION
  Report Type: Report from Study
  Country: CN (occurrence: None)
  Receive Date: 20210816
  Receipt Date: 20220728
  Transmission Date: 20221027
  Serious: Yes (Hospitalization)
  Sender: FDA-Public Use
  Company Number: CN-ROCHE-2884954

PATIENT
  Age: 63 Year
  Sex: Male
  Weight: 74 kg

DRUGS (39)
  1. PLACEBO [Suspect]
     Active Substance: UNSPECIFIED INGREDIENT
     Indication: Non-small cell lung cancer stage IV
     Dosage: START DATE OF MOST RECENT DOSE OF STUDY DRUG PRIOR TO AE  14/OCT/2020
     Route: 041
     Dates: start: 20200923
  2. CARBOPLATIN [Suspect]
     Active Substance: CARBOPLATIN
     Indication: Non-small cell lung cancer stage IV
     Dosage: ON 14/OCT/2020, HE RECEIVED MOST RECENT DOSE OF CARBOPLATIN (446 MG) PRIOR TO ONSET OF ANEMIA AND GE
     Route: 042
     Dates: start: 20200923
  3. BEVACIZUMAB [Suspect]
     Active Substance: BEVACIZUMAB
     Indication: Non-small cell lung cancer stage IV
     Dosage: ON 14/OCT/2020 AND 30/NOV/2020, HE RECEIVED MOST RECENT DOSE OF BEVACIZUMAB (1095 MG) PRIOR TO ONSET
     Route: 042
     Dates: start: 20200923
  4. PEMETREXED [Suspect]
     Active Substance: PEMETREXED
     Indication: Non-small cell lung cancer stage IV
     Dosage: ON 14/OCT/2020 AND 30/NOV/2020, HE RECEIVED MOST RECENT DOSE OF PEMETREXED (920 MG) PRIOR TO ONSET O
     Route: 042
     Dates: start: 20200923
  5. ZOLEDRONIC ACID [Concomitant]
     Active Substance: ZOLEDRONIC ACID
     Route: 011
     Dates: start: 20201014, end: 20201014
  6. ZOLEDRONIC ACID [Concomitant]
     Active Substance: ZOLEDRONIC ACID
     Dates: start: 20201113, end: 20201113
  7. ZOLEDRONIC ACID [Concomitant]
     Active Substance: ZOLEDRONIC ACID
     Dates: start: 20201219, end: 20201219
  8. ZOLEDRONIC ACID [Concomitant]
     Active Substance: ZOLEDRONIC ACID
     Dates: start: 20210119, end: 20210119
  9. ZOLEDRONIC ACID [Concomitant]
     Active Substance: ZOLEDRONIC ACID
     Dates: start: 20210223, end: 20210223
  10. ZOLEDRONIC ACID [Concomitant]
     Active Substance: ZOLEDRONIC ACID
     Dates: start: 20210323, end: 20210323
  11. ZOLEDRONIC ACID [Concomitant]
     Active Substance: ZOLEDRONIC ACID
     Dates: start: 20210429, end: 20210429
  12. ZOLEDRONIC ACID [Concomitant]
     Active Substance: ZOLEDRONIC ACID
     Dates: start: 20210701, end: 20210701
  13. ZOLEDRONIC ACID [Concomitant]
     Active Substance: ZOLEDRONIC ACID
     Dates: start: 20210810, end: 20210810
  14. TROPISETRON HYDROCHLORIDE [Concomitant]
     Active Substance: TROPISETRON HYDROCHLORIDE
     Dates: start: 20201014, end: 20201014
  15. TROPISETRON HYDROCHLORIDE [Concomitant]
     Active Substance: TROPISETRON HYDROCHLORIDE
     Dates: start: 20201106, end: 20201106
  16. TROPISETRON HYDROCHLORIDE [Concomitant]
     Active Substance: TROPISETRON HYDROCHLORIDE
     Dates: start: 20201130, end: 20201130
  17. TROPISETRON HYDROCHLORIDE [Concomitant]
     Active Substance: TROPISETRON HYDROCHLORIDE
     Dates: start: 20201221, end: 20201221
  18. TROPISETRON HYDROCHLORIDE [Concomitant]
     Active Substance: TROPISETRON HYDROCHLORIDE
     Dates: start: 20210111, end: 20210111
  19. TROPISETRON HYDROCHLORIDE [Concomitant]
     Active Substance: TROPISETRON HYDROCHLORIDE
     Dates: start: 20210201, end: 20210201
  20. TROPISETRON HYDROCHLORIDE [Concomitant]
     Active Substance: TROPISETRON HYDROCHLORIDE
     Dates: start: 20210223, end: 20210223
  21. TROPISETRON HYDROCHLORIDE [Concomitant]
     Active Substance: TROPISETRON HYDROCHLORIDE
     Dates: start: 20210317, end: 20210317
  22. TROPISETRON HYDROCHLORIDE [Concomitant]
     Active Substance: TROPISETRON HYDROCHLORIDE
     Dates: start: 20210409, end: 20210409
  23. TROPISETRON HYDROCHLORIDE [Concomitant]
     Active Substance: TROPISETRON HYDROCHLORIDE
     Dates: start: 20210429, end: 20210429
  24. TROPISETRON HYDROCHLORIDE [Concomitant]
     Active Substance: TROPISETRON HYDROCHLORIDE
     Dates: start: 20210723, end: 20210723
  25. TROPISETRON HYDROCHLORIDE [Concomitant]
     Active Substance: TROPISETRON HYDROCHLORIDE
     Dates: start: 20210519, end: 20210519
  26. TROPISETRON HYDROCHLORIDE [Concomitant]
     Active Substance: TROPISETRON HYDROCHLORIDE
     Dates: start: 20210609, end: 20210609
  27. TROPISETRON HYDROCHLORIDE [Concomitant]
     Active Substance: TROPISETRON HYDROCHLORIDE
     Dates: start: 20210701, end: 20210701
  28. TROPISETRON HYDROCHLORIDE [Concomitant]
     Active Substance: TROPISETRON HYDROCHLORIDE
     Dates: start: 20210723, end: 20210723
  29. VITAMIN B12 [Concomitant]
     Active Substance: CYANOCOBALAMIN
     Dates: start: 20201130, end: 20201130
  30. VITAMIN B12 [Concomitant]
     Active Substance: CYANOCOBALAMIN
     Dates: start: 20210201, end: 20210201
  31. VITAMIN B12 [Concomitant]
     Active Substance: CYANOCOBALAMIN
     Dates: start: 20210409, end: 20210409
  32. VITAMIN B12 [Concomitant]
     Active Substance: CYANOCOBALAMIN
     Dates: start: 20210609, end: 20210609
  33. GLUTATHIONE [Concomitant]
     Active Substance: GLUTATHIONE
     Dates: start: 20210111, end: 20210113
  34. PREGABALIN [Concomitant]
     Active Substance: PREGABALIN
     Indication: Pain management
     Dates: start: 20210409
  35. CODEINE;DICLOFENAC [Concomitant]
     Dates: start: 20210223
  36. POTASSIUM CITRATE [Concomitant]
     Active Substance: POTASSIUM CITRATE
     Dates: start: 20210129, end: 20210222
  37. DOCETAXEL [Concomitant]
     Active Substance: DOCETAXEL
     Dates: start: 20210927, end: 20211004
  38. BRUCEA JAVANICA OIL [Concomitant]
     Dates: start: 20210927, end: 20211004
  39. OLEUM FRUCTUS BRUCEAE [Concomitant]
     Dates: start: 20210927, end: 20210927

REACTIONS (3)
  - Platelet count decreased [Recovered/Resolved]
  - Asthenia [Not Recovered/Not Resolved]
  - Anaemia [Not Recovered/Not Resolved]

NARRATIVE: CASE EVENT DATE: 20201103
